FAERS Safety Report 9705819 (Version 3)
Quarter: 2015Q3

REPORT INFORMATION
  Report Type: Spontaneous
  Country: US (occurrence: US)
  Receive Date: 20131122
  Receipt Date: 20150803
  Transmission Date: 20151125
  Serious: No
  Sender: FDA-Public Use
  Company Number: US-GILEAD-2008-0017888

PATIENT
  Age: 75 Year
  Sex: Female

DRUGS (18)
  1. LORTAB [Concomitant]
     Active Substance: ACETAMINOPHEN\HYDROCODONE BITARTRATE
  2. IPRATROPIUM [Concomitant]
     Active Substance: IPRATROPIUM
  3. QVAR [Concomitant]
     Active Substance: BECLOMETHASONE DIPROPIONATE
  4. TOPROX XL [Concomitant]
  5. ZOLOFT [Concomitant]
     Active Substance: SERTRALINE HYDROCHLORIDE
  6. COUMADIN [Concomitant]
     Active Substance: WARFARIN SODIUM
  7. LISINOPRIL. [Concomitant]
     Active Substance: LISINOPRIL
  8. ZOCOR [Concomitant]
     Active Substance: SIMVASTATIN
  9. FLUSOL [Concomitant]
  10. LETAIRIS [Suspect]
     Active Substance: AMBRISENTAN
     Indication: PULMONARY ARTERIAL HYPERTENSION
     Route: 048
     Dates: start: 20080819
  11. BETAPACE [Concomitant]
     Active Substance: SOTALOL HYDROCHLORIDE
  12. FLOVENT [Concomitant]
     Active Substance: FLUTICASONE PROPIONATE
  13. POTASSIUM CHLORIDE. [Concomitant]
     Active Substance: POTASSIUM CHLORIDE
  14. OXYGEN. [Concomitant]
     Active Substance: OXYGEN
  15. ALDACTONE [Concomitant]
     Active Substance: SPIRONOLACTONE
  16. BUMEX [Concomitant]
     Active Substance: BUMETANIDE
  17. PRILOSEC [Concomitant]
     Active Substance: OMEPRAZOLE MAGNESIUM
  18. XANAX [Concomitant]
     Active Substance: ALPRAZOLAM

REACTIONS (4)
  - Oedema peripheral [None]
  - Night sweats [None]
  - Nausea [None]
  - Dyspnoea [None]
